FAERS Safety Report 10008893 (Version 1)
Quarter: 2014Q1

REPORT INFORMATION
  Report Type: Spontaneous
  Country: US (occurrence: US)
  Receive Date: 20140313
  Receipt Date: 20140313
  Transmission Date: 20141002
  Serious: Yes (Death, Hospitalization)
  Sender: FDA-Public Use
  Company Number: PHHY2014US027031

PATIENT
  Age: 66 Year
  Sex: Female

DRUGS (4)
  1. WARFARIN [Suspect]
  2. PREDNISONE [Suspect]
     Dosage: 2 MG, UNK
  3. TERIPARATIDE [Suspect]
  4. LEFLUNOMIDE [Concomitant]

REACTIONS (11)
  - Death [Fatal]
  - Calciphylaxis [Unknown]
  - Pain [Unknown]
  - Nodule [Unknown]
  - Lividity [Unknown]
  - Erythema [Unknown]
  - Skin induration [Unknown]
  - Skin plaque [Unknown]
  - Purpura [Unknown]
  - Skin lesion [Unknown]
  - Hyperplasia [Unknown]
